FAERS Safety Report 5218192-3 (Version None)
Quarter: 2007Q1

REPORT INFORMATION
  Report Type: 
  Country: None (occurrence: None)
  Receive Date: 20061130
  Receipt Date: 20060718
  Transmission Date: 20070707
  Serious: Yes (Other)
  Sender: FDA-Public Use
  Company Number: US_0504116278

PATIENT
  Age: 44 Year
  Sex: Male
  Weight: 140.9 kg

DRUGS (5)
  1. ZYPREXA [Suspect]
     Indication: SCHIZOPHRENIA
     Dosage: 20 MG, DAILY (1/D), ORAL
     Route: 048
     Dates: start: 20000825
  2. ANAPRIL (ENALAPRIL MALEATE) [Concomitant]
  3. LEVOTHYROXINE SODIUM [Concomitant]
  4. BENADRYL [Concomitant]
  5. HALDOL [Concomitant]

REACTIONS (2)
  - DIABETES MELLITUS NON-INSULIN-DEPENDENT [None]
  - WEIGHT INCREASED [None]
